FAERS Safety Report 18859415 (Version 1)
Quarter: 2021Q1

REPORT INFORMATION
  Report Type: Spontaneous
  Country: US (occurrence: US)
  Receive Date: 20210208
  Receipt Date: 20210208
  Transmission Date: 20210420
  Serious: Yes (Other)
  Sender: FDA-Public Use
  Company Number: None

PATIENT
  Age: 29 Year
  Sex: Female
  Weight: 83.25 kg

DRUGS (2)
  1. ALL AMERICAN CHEMICAL HAND SANITIZER [Suspect]
     Active Substance: ALCOHOL
     Indication: STERILISATION
     Dosage: ?          OTHER FREQUENCY:EVERY 45 MINS;?
     Route: 061
     Dates: start: 20210118, end: 20210201
  2. ADULT DAILY VITAMIN [Concomitant]

REACTIONS (7)
  - Headache [None]
  - Rash [None]
  - Product odour abnormal [None]
  - Paraesthesia [None]
  - Rash erythematous [None]
  - Skin irritation [None]
  - Skin texture abnormal [None]

NARRATIVE: CASE EVENT DATE: 20210118
